FAERS Safety Report 20641871 (Version 1)
Quarter: 2022Q1

REPORT INFORMATION
  Report Type: Spontaneous
  Country: ME (occurrence: ME)
  Receive Date: 20220328
  Receipt Date: 20220328
  Transmission Date: 20220423
  Serious: Yes (Other)
  Sender: FDA-Public Use
  Company Number: ME-NOVARTISPH-NVSC2022ME067168

PATIENT
  Age: 72 Year
  Sex: Female

DRUGS (2)
  1. TAFINLAR [Suspect]
     Active Substance: DABRAFENIB MESYLATE
     Indication: Product used for unknown indication
     Dosage: 75 MG, (2X2)
     Route: 065
     Dates: start: 202010
  2. MEKINIST [Suspect]
     Active Substance: TRAMETINIB DIMETHYL SULFOXIDE
     Indication: Product used for unknown indication
     Dosage: 2 MG, 1X1
     Route: 065
     Dates: start: 202010

REACTIONS (5)
  - Hyperplasia adrenal [Unknown]
  - Angina pectoris [Unknown]
  - Renal cyst [Unknown]
  - Mitral valve disease [Unknown]
  - Headache [Unknown]

NARRATIVE: CASE EVENT DATE: 20211001
